FAERS Safety Report 10081094 (Version 1)
Quarter: 2014Q2

REPORT INFORMATION
  Report Type: Spontaneous
  Country: KR (occurrence: KR)
  Receive Date: 20140416
  Receipt Date: 20140416
  Transmission Date: 20141212
  Serious: Yes (Hospitalization)
  Sender: FDA-Public Use
  Company Number: KR-SA-2014SA047582

PATIENT
  Age: 59 Year
  Sex: Male

DRUGS (13)
  1. METRONIDAZOLE [Suspect]
     Indication: CHOLECYSTITIS ACUTE
     Route: 042
  2. MEROPENEM [Suspect]
     Indication: CHOLECYSTITIS ACUTE
     Route: 042
  3. MEROPENEM [Suspect]
     Indication: CHOLECYSTITIS ACUTE
     Route: 042
  4. QUININE [Suspect]
     Indication: PLASMODIUM VIVAX INFECTION
     Route: 042
  5. QUININE [Suspect]
     Indication: PLASMODIUM VIVAX INFECTION
     Route: 042
  6. CHLOROQUINE (SALT NOT SPECIFIED) [Suspect]
     Indication: PLASMODIUM VIVAX INFECTION
     Dosage: 10 MG OF BASE/KG
     Route: 065
  7. CHLOROQUINE (SALT NOT SPECIFIED) [Suspect]
     Indication: PLASMODIUM VIVAX INFECTION
     Route: 065
  8. HYDROCORTISONE [Concomitant]
     Indication: SHOCK
  9. DOPAMINE [Concomitant]
     Indication: BLOOD PRESSURE SYSTOLIC
     Dosage: UP TO 30 MCG/KG/MIN
  10. NOREPINEPHRINE [Concomitant]
     Indication: BLOOD PRESSURE SYSTOLIC
     Dosage: UP TO 43 MCG/MIN
  11. VASOPRESSIN AND ANALOGUES [Concomitant]
     Indication: BLOOD PRESSURE SYSTOLIC
     Dosage: UP TO 2 UNITS/HR
  12. DOBUTAMINE [Concomitant]
     Indication: BLOOD PRESSURE SYSTOLIC
     Dosage: UP TO 30 MCG/KG/MIN
  13. HEPARIN [Concomitant]

REACTIONS (2)
  - Haemorrhage [Recovered/Resolved]
  - Hypoprothrombinaemia [Recovered/Resolved]
